FAERS Safety Report 8925158 (Version 1)
Quarter: 2012Q4

REPORT INFORMATION
  Report Type: Spontaneous
  Country: RO (occurrence: None)
  Receive Date: 20121116
  Receipt Date: 20121116
  Transmission Date: 20130627
  Serious: Yes (Congenital Anomaly)
  Sender: FDA-Public Use
  Company Number: B0844297A

PATIENT
  Sex: Male

DRUGS (3)
  1. RETROVIR [Suspect]
     Indication: ANTIVIRAL PROPHYLAXIS
  2. EPIVIR [Suspect]
     Indication: ANTIVIRAL PROPHYLAXIS
  3. ANTIRETROVIRAL MEDICATIONS [Suspect]
     Indication: HIV INFECTION
     Route: 064

REACTIONS (3)
  - Anaemia macrocytic [None]
  - Caesarean section [None]
  - Gonadal dysgenesis [None]
